FAERS Safety Report 5993078-5 (Version None)
Quarter: 2008Q4

REPORT INFORMATION
  Report Type: 
  Country: None (occurrence: None)
  Receive Date: 20081210
  Receipt Date: 20081126
  Transmission Date: 20090506
  Serious: Yes (Life-Threatening, Other)
  Sender: FDA-Public Use
  Company Number: 08-546

PATIENT
  Age: 53 Year
  Sex: Male
  Weight: 168 kg

DRUGS (1)
  1. ALEVE [Suspect]
     Indication: MYALGIA
     Dosage: 220 MG, ONCE, ORAL
     Route: 048
     Dates: start: 20081006

REACTIONS (7)
  - ANAPHYLACTIC REACTION [None]
  - BLOOD COUNT ABNORMAL [None]
  - CARDIAC ENZYMES INCREASED [None]
  - CIRCULATORY COLLAPSE [None]
  - FALL [None]
  - HYPERVENTILATION [None]
  - LOSS OF CONSCIOUSNESS [None]
